FAERS Safety Report 6750185-7 (Version None)
Quarter: 2010Q2

REPORT INFORMATION
  Report Type: 
  Country: None (occurrence: None)
  Receive Date: 20100601
  Receipt Date: 20100521
  Transmission Date: 20101027
  Serious: Yes (Other)
  Sender: FDA-Public Use
  Company Number: MY-PFIZER INC-2010063903

PATIENT
  Age: 25 Year
  Sex: Female

DRUGS (2)
  1. DIFLUCAN [Suspect]
     Dosage: 200 MG, 1X/DAY
     Route: 042
     Dates: start: 20091103
  2. SULPERAZON [Suspect]
     Indication: SEPSIS
     Dosage: 2 G, 1X/DAY
     Route: 042

REACTIONS (2)
  - BLOOD ALKALINE PHOSPHATASE INCREASED [None]
  - BLOOD BILIRUBIN INCREASED [None]
